FAERS Safety Report 12807211 (Version 3)
Quarter: 2016Q4

REPORT INFORMATION
  Report Type: Spontaneous
  Country: JP (occurrence: JP)
  Receive Date: 20161004
  Receipt Date: 20161110
  Transmission Date: 20170207
  Serious: Yes (Death)
  Sender: FDA-Public Use
  Company Number: JP-SA-2016SA179822

PATIENT
  Age: 75 Year
  Sex: Male
  Weight: 50 kg

DRUGS (15)
  1. CALCIUM LEVOFOLINATE [Suspect]
     Active Substance: LEVOLEUCOVORIN CALCIUM
     Indication: RECTAL CANCER
     Route: 041
     Dates: start: 20160603, end: 20160603
  2. AVASTIN [Concomitant]
     Active Substance: BEVACIZUMAB
     Dosage: DOSE_245 MG/BODY
     Route: 041
     Dates: start: 20160603, end: 20160603
  3. FAMOTIDINE. [Concomitant]
     Active Substance: FAMOTIDINE
     Route: 065
     Dates: start: 20160603, end: 20160603
  4. ALOXI [Concomitant]
     Active Substance: PALONOSETRON HYDROCHLORIDE
     Route: 065
     Dates: start: 20160603, end: 20160603
  5. ARTIST [Concomitant]
     Active Substance: CARVEDILOL
     Route: 065
     Dates: end: 20160604
  6. DEXART [Concomitant]
     Active Substance: DEXAMETHASONE SODIUM PHOSPHATE
     Route: 065
     Dates: start: 20160603, end: 20160603
  7. LASIX [Concomitant]
     Active Substance: FUROSEMIDE
     Route: 065
     Dates: end: 20160604
  8. MUCOSTA [Concomitant]
     Active Substance: REBAMIPIDE
     Route: 065
     Dates: end: 20160604
  9. 5-FU [Concomitant]
     Active Substance: FLUOROURACIL
     Route: 040
     Dates: start: 20160603, end: 20160603
  10. ALDACTONE-A [Concomitant]
     Active Substance: SPIRONOLACTONE
     Route: 065
     Dates: end: 20160604
  11. 5-FU [Concomitant]
     Active Substance: FLUOROURACIL
     Route: 042
     Dates: start: 20160603, end: 20160603
  12. BAYASPIRIN [Concomitant]
     Active Substance: ASPIRIN
     Route: 065
     Dates: end: 20160604
  13. ADALAT CC [Concomitant]
     Active Substance: NIFEDIPINE
     Route: 065
     Dates: end: 20160604
  14. ELPLAT [Suspect]
     Active Substance: OXALIPLATIN
     Indication: RECTAL CANCER
     Route: 041
     Dates: start: 20160603, end: 20160603
  15. POLARAMINE [Concomitant]
     Active Substance: DEXCHLORPHENIRAMINE MALEATE
     Route: 065
     Dates: start: 20160603, end: 20160603

REACTIONS (1)
  - Cardiac failure acute [Fatal]

NARRATIVE: CASE EVENT DATE: 20160604
